FAERS Safety Report 9642420 (Version 1)
Quarter: 2013Q4

REPORT INFORMATION
  Report Type: Spontaneous
  Country: CA (occurrence: CA)
  Receive Date: 20131024
  Receipt Date: 20131024
  Transmission Date: 20140711
  Serious: Yes (Other)
  Sender: FDA-Public Use
  Company Number: CA-ROCHE-1293311

PATIENT
  Age: 9 Year
  Sex: Male
  Weight: 23 kg

DRUGS (9)
  1. NAPROXEN [Suspect]
     Indication: PRODUCT USED FOR UNKNOWN INDICATION
     Route: 065
  2. FENTANYL [Suspect]
     Indication: PRODUCT USED FOR UNKNOWN INDICATION
     Route: 058
  3. GABAPENTIN [Suspect]
     Indication: PRODUCT USED FOR UNKNOWN INDICATION
     Route: 065
  4. HYDROMORPHONE [Suspect]
     Indication: PRODUCT USED FOR UNKNOWN INDICATION
     Dosage: AS REQUIRED
     Route: 058
  5. DOCUSATE [Concomitant]
     Route: 065
  6. LORAZEPAM [Concomitant]
     Route: 065
  7. NABILONE [Concomitant]
     Route: 065
  8. ONDANSETRON [Concomitant]
     Route: 065
  9. POLYETHYLENE GLYCOL 3350 [Concomitant]
     Route: 048

REACTIONS (3)
  - Bone pain [Unknown]
  - Condition aggravated [Unknown]
  - Drug ineffective [Unknown]
